FAERS Safety Report 20003290 (Version 3)
Quarter: 2021Q4

REPORT INFORMATION
  Report Type: Spontaneous
  Country: US (occurrence: US)
  Receive Date: 20211027
  Receipt Date: 20211222
  Transmission Date: 20220304
  Serious: Yes (Hospitalization)
  Sender: FDA-Public Use
  Company Number: US-PFIZER INC-2021895222

PATIENT
  Age: 67 Year
  Sex: Female
  Weight: 116.57 kg

DRUGS (2)
  1. LORBRENA [Suspect]
     Active Substance: LORLATINIB
     Indication: Metastases to lung
     Dosage: 50 MG, 1X/DAY, (TWO TABLETS A DAY TO FOUR TABLETS A DAY)
     Route: 048
  2. LORBRENA [Suspect]
     Active Substance: LORLATINIB
     Dosage: 100 MG, 1X/DAY, (TWO TABLETS A DAY TO FOUR TABLETS A DAY)

REACTIONS (2)
  - Blood glucose abnormal [Unknown]
  - Off label use [Unknown]
